FAERS Safety Report 10808550 (Version 1)
Quarter: 2015Q1

REPORT INFORMATION
  Report Type: Report from Study
  Country: US (occurrence: US)
  Receive Date: 20150217
  Receipt Date: 20150217
  Transmission Date: 20150721
  Serious: No
  Sender: FDA-Public Use
  Company Number: US-ABBVIE-14K-163-1265064-00

PATIENT
  Age: 59 Year
  Sex: Female

DRUGS (4)
  1. UNKNOWN MEDICATION CALLED HYDROXYCLOR [Concomitant]
     Indication: DIURETIC THERAPY
  2. HUMIRA [Suspect]
     Active Substance: ADALIMUMAB
     Indication: RHEUMATOID ARTHRITIS
     Dates: start: 201306
  3. ASPIRIN. [Concomitant]
     Active Substance: ASPIRIN
     Indication: PRODUCT USED FOR UNKNOWN INDICATION
  4. UNKNOWN MEDICATION CALLED AMIN [Concomitant]
     Indication: BLOOD PRESSURE

REACTIONS (2)
  - Incorrect product storage [Unknown]
  - Inappropriate schedule of drug administration [Unknown]

NARRATIVE: CASE EVENT DATE: 20140720
